FAERS Safety Report 18412102 (Version 1)
Quarter: 2020Q4

REPORT INFORMATION
  Report Type: Spontaneous
  Country: DE (occurrence: DE)
  Receive Date: 20201021
  Receipt Date: 20201021
  Transmission Date: 20210114
  Serious: Yes (Other)
  Sender: FDA-Public Use
  Company Number: DE-JNJFOC-20201023420

PATIENT
  Age: 85 Year
  Sex: Male

DRUGS (5)
  1. GLURENORM [Concomitant]
     Active Substance: GLIQUIDONE
  2. SITAGLIPTIN [Concomitant]
     Active Substance: SITAGLIPTIN
  3. RAMIPRIL. [Concomitant]
     Active Substance: RAMIPRIL
  4. ERLEADA [Suspect]
     Active Substance: APALUTAMIDE
     Indication: PRODUCT USED FOR UNKNOWN INDICATION
     Route: 048
  5. ASPRIN [Concomitant]
     Active Substance: ASPIRIN
     Dosage: 100

REACTIONS (1)
  - Diabetes mellitus [Unknown]
